FAERS Safety Report 13384784 (Version 1)
Quarter: 2017Q1

REPORT INFORMATION
  Report Type: Report from Study
  Country: US (occurrence: US)
  Receive Date: 20170329
  Receipt Date: 20170329
  Transmission Date: 20170429
  Serious: Yes (Death, Hospitalization)
  Sender: FDA-Public Use
  Company Number: US-ACTELION-A-US2016-145201

PATIENT
  Age: 11 Month
  Sex: Male

DRUGS (5)
  1. TRACLEER [Suspect]
     Active Substance: BOSENTAN
     Dosage: 10 MG, BID
     Route: 048
     Dates: start: 20160830
  2. TRACLEER [Suspect]
     Active Substance: BOSENTAN
     Dosage: 10 MG, UNK
     Route: 048
     Dates: start: 20160808
  3. TRACLEER [Suspect]
     Active Substance: BOSENTAN
     Dosage: 20 MG, BID
     Route: 048
  4. TRACLEER [Suspect]
     Active Substance: BOSENTAN
     Indication: PULMONARY ARTERIAL HYPERTENSION
     Dosage: 62.5 MG, BID
     Route: 049
     Dates: start: 20161018
  5. REVATIO [Concomitant]
     Active Substance: SILDENAFIL CITRATE

REACTIONS (6)
  - Heart rate increased [Unknown]
  - Malaise [Unknown]
  - Death [Fatal]
  - Dyspnoea [Unknown]
  - Chronic respiratory failure [Unknown]
  - Chest pain [Unknown]

NARRATIVE: CASE EVENT DATE: 201701
